FAERS Safety Report 9349865 (Version 2)
Quarter: 2013Q4

REPORT INFORMATION
  Report Type: Spontaneous
  Country: JP (occurrence: JP)
  Receive Date: 20130614
  Receipt Date: 20131115
  Transmission Date: 20140711
  Serious: Yes (Other)
  Sender: FDA-Public Use
  Company Number: JP-GILEAD-2013-0076970

PATIENT
  Age: 60 Year
  Sex: 0
  Weight: 46.4 kg

DRUGS (1)
  1. HEPSERA [Suspect]
     Indication: PRODUCT USED FOR UNKNOWN INDICATION
     Dosage: 1 DF, QD
     Route: 048

REACTIONS (28)
  - Osteomalacia [Unknown]
  - Fanconi syndrome acquired [Unknown]
  - Hip fracture [Unknown]
  - Femoral neck fracture [Unknown]
  - Pubis fracture [Unknown]
  - Pathological fracture [Unknown]
  - Nephrolithiasis [Unknown]
  - Tibia fracture [Unknown]
  - Ankle fracture [Unknown]
  - Mobility decreased [Unknown]
  - Renal impairment [Unknown]
  - Renal glycosuria [Unknown]
  - Hypouricaemia [Unknown]
  - Protein urine [Unknown]
  - Pain [Unknown]
  - Bone pain [Recovering/Resolving]
  - Arthralgia [Unknown]
  - Abdominal tenderness [Unknown]
  - Groin pain [Unknown]
  - Spinal osteoarthritis [Unknown]
  - Spinal osteoarthritis [Unknown]
  - Fibrous cortical defect [Unknown]
  - Metabolic acidosis [Unknown]
  - Hypophosphataemia [Unknown]
  - Urine phosphorus decreased [Unknown]
  - Blood alkaline phosphatase increased [Unknown]
  - Muscular weakness [Unknown]
  - Liver disorder [Unknown]
